FAERS Safety Report 6401783-1 (Version None)
Quarter: 2009Q4

REPORT INFORMATION
  Report Type: 
  Country: None (occurrence: None)
  Receive Date: 20091015
  Receipt Date: 20091009
  Transmission Date: 20100525
  Serious: Yes (Other)
  Sender: FDA-Public Use
  Company Number: US-BAYER-200916270GPV

PATIENT
  Age: 47 Year
  Sex: Male
  Weight: 73 kg

DRUGS (3)
  1. SORAFENIB [Suspect]
     Indication: HEPATIC NEOPLASM MALIGNANT
     Dosage: TOTAL DAILY DOSE: 800 MG
     Route: 048
     Dates: start: 20081229, end: 20090212
  2. SORAFENIB [Suspect]
     Dates: end: 20090503
  3. ENTECAVIR [Concomitant]
     Indication: DRUG USE FOR UNKNOWN INDICATION
     Route: 065
     Dates: start: 20070710

REACTIONS (2)
  - HEPATIC NEOPLASM MALIGNANT [None]
  - PULMONARY EMBOLISM [None]
